FAERS Safety Report 23789531 (Version 1)
Quarter: 2024Q2

REPORT INFORMATION
  Report Type: Spontaneous
  Country: US (occurrence: US)
  Receive Date: 20240426
  Receipt Date: 20240426
  Transmission Date: 20240716
  Serious: Yes (Hospitalization)
  Sender: FDA-Public Use
  Company Number: US-FMCRTG-FMC-2404-000441

PATIENT
  Age: 48 Year
  Sex: Female
  Weight: 97 kg

DRUGS (2)
  1. DELFLEX WITH DEXTROSE 1.5% LOW MAGNESIUM LOW CALCIUM [Suspect]
     Active Substance: CALCIUM CHLORIDE\DEXTROSE\MAGNESIUM CHLORIDE\SODIUM CHLORIDE\SODIUM LACTATE
     Indication: End stage renal disease
     Dosage: TIDAL THERAPY WITH 11,800 ML OVER 5 CYCLES WITH A LAST FILL OF 2400 ML AND A DAYTIME DRAIN OF 2400 M
     Route: 033
  2. DELFLEX WITH DEXTROSE 2.5% LOW MAGNESIUM LOW CALCIUM [Suspect]
     Active Substance: CALCIUM CHLORIDE\DEXTROSE\MAGNESIUM CHLORIDE\SODIUM CHLORIDE\SODIUM LACTATE
     Indication: End stage renal disease
     Dosage: TIDAL THERAPY WITH 11,800 ML OVER 5 CYCLES WITH A LAST FILL OF 2400 ML AND A DAYTIME DRAIN OF 2400 M
     Route: 033

REACTIONS (1)
  - Inadequate peritoneal dialysis [Unknown]

NARRATIVE: CASE EVENT DATE: 20240411
